FAERS Safety Report 4469249-6 (Version None)
Quarter: 2004Q4

REPORT INFORMATION
  Report Type: 
  Country: None (occurrence: None)
  Receive Date: 20041008
  Receipt Date: 20030808
  Transmission Date: 20050328
  Serious: No
  Sender: FDA-Public Use
  Company Number: US-BRISTOL-MYERS SQUIBB COMPANY-12350450

PATIENT
  Age: 61 Year
  Sex: Male
  Weight: 70 kg

DRUGS (6)
  1. AVAPRO [Suspect]
     Route: 048
     Dates: start: 20011201
  2. PROZAC [Concomitant]
  3. VITAMIN B6 [Concomitant]
  4. SAW PALMETTO [Concomitant]
  5. ASPIRIN [Concomitant]
     Route: 048
  6. INSULIN [Concomitant]

REACTIONS (4)
  - DIZZINESS [None]
  - GAIT DISTURBANCE [None]
  - LIVEDO RETICULARIS [None]
  - NAUSEA [None]
